FAERS Safety Report 8310884 (Version 3)
Quarter: 2013Q4

REPORT INFORMATION
  Report Type: Report from Study
  Country: US (occurrence: US)
  Receive Date: 20111226
  Receipt Date: 20131209
  Transmission Date: 20140711
  Serious: Yes (Death, Other)
  Sender: FDA-Public Use
  Company Number: US-ELI_LILLY_AND_COMPANY-US201112006043

PATIENT
  Age: 78 Year
  Sex: Female

DRUGS (1)
  1. TADALAFIL [Suspect]
     Indication: PULMONARY HYPERTENSION
     Dosage: 40 MG, QD
     Route: 048
     Dates: start: 20110208

REACTIONS (2)
  - Death [Fatal]
  - Radiation pneumonitis [Recovered/Resolved]
